FAERS Safety Report 9461839 (Version 2)
Quarter: 2013Q3

REPORT INFORMATION
  Report Type: Report from Study
  Country: US (occurrence: US)
  Receive Date: 20130816
  Receipt Date: 20130827
  Transmission Date: 20140515
  Serious: Yes (Death, Hospitalization)
  Sender: FDA-Public Use
  Company Number: US-PFIZER INC-2013233201

PATIENT
  Age: 52 Year
  Sex: Male
  Weight: 60 kg

DRUGS (6)
  1. BLINDED CELECOXIB [Suspect]
     Indication: NON-SMALL CELL LUNG CANCER
     Dosage: CYCLES 1-6, 400 MG, BID DAY 1 TO 21,
     Route: 048
     Dates: start: 20121126
  2. BLINDED PLACEBO [Suspect]
     Indication: NON-SMALL CELL LUNG CANCER
     Dosage: CYCLES 1-6, 400 MG, BID DAY 1 TO 21,
     Route: 048
     Dates: start: 20121126
  3. BLINDED CELECOXIB [Suspect]
     Dosage: CYCLE 7+, 400 MG, BID DAY 1 TO 21,
     Route: 048
     Dates: start: 20130509, end: 20130613
  4. BLINDED PLACEBO [Suspect]
     Dosage: CYCLE 7+, 400 MG, BID DAY 1 TO 21,
     Route: 048
     Dates: start: 20130509, end: 20130613
  5. GEMCITABINE HYDROCHLORIDE [Concomitant]
     Indication: NON-SMALL CELL LUNG CANCER
     Dosage: 1000 MG/M2, DAYS 1 AND DAY 8, EVERY 21 DAYS
     Route: 042
     Dates: start: 20121126, end: 20130408
  6. CARBOPLATIN [Concomitant]
     Indication: NON-SMALL CELL LUNG CANCER
     Dosage: AUC 5.5 DAY 1 (AUC=5.0 WITH PRIOR CHEST RADIOGRAPHY); ON DAY 1, EVERY 21 DAYS
     Route: 042
     Dates: start: 20121126, end: 20130408

REACTIONS (2)
  - Respiratory failure [Fatal]
  - Hypoxia [Unknown]
